FAERS Safety Report 6436757-8 (Version None)
Quarter: 2009Q4

REPORT INFORMATION
  Report Type: 
  Country: None (occurrence: None)
  Receive Date: 20091109
  Receipt Date: 20091029
  Transmission Date: 20100525
  Serious: Yes (Other)
  Sender: FDA-Public Use
  Company Number: TPA2009A03184

PATIENT
  Age: 32 Month
  Sex: Male
  Weight: 15.8759 kg

DRUGS (6)
  1. PREVACID [Suspect]
     Indication: GASTROOESOPHAGEAL REFLUX DISEASE
     Dosage: 7.5 MG, 2 IN 1 D, PER ORAL; 15 MG, 2 IN 1 D, PER ORAL
     Route: 048
     Dates: start: 20070701, end: 20080101
  2. PREVACID [Suspect]
     Indication: GASTROOESOPHAGEAL REFLUX DISEASE
     Dosage: 7.5 MG, 2 IN 1 D, PER ORAL; 15 MG, 2 IN 1 D, PER ORAL
     Route: 048
     Dates: start: 20080101, end: 20090801
  3. UNSPECIFIED ANTIBIOTICS (ANTIBIOTICS) [Suspect]
     Indication: OTITIS MEDIA
  4. ZYRTEC [Concomitant]
  5. MOTRIN [Concomitant]
  6. TYLENOL [Concomitant]

REACTIONS (6)
  - ANTINUCLEAR ANTIBODY POSITIVE [None]
  - OSTEOPENIA [None]
  - PAIN [None]
  - RED BLOOD CELL SEDIMENTATION RATE INCREASED [None]
  - SCREAMING [None]
  - SPINAL COMPRESSION FRACTURE [None]
